FAERS Safety Report 26183639 (Version 1)
Quarter: 2025Q4

REPORT INFORMATION
  Report Type: Report from Study
  Country: IN (occurrence: IN)
  Receive Date: 20251221
  Receipt Date: 20251221
  Transmission Date: 20260117
  Serious: Yes (Other)
  Sender: ALEXION PHARMACEUTICALS
  Company Number: IN-AstraZeneca-CH-01016188A

PATIENT
  Sex: Male
  Weight: 63 kg

DRUGS (1)
  1. DURVALUMAB [Suspect]
     Active Substance: DURVALUMAB
     Indication: Hepatocellular carcinoma
     Dosage: 1500 MILLIGRAM, Q3W

REACTIONS (5)
  - Thyrotoxic crisis [Unknown]
  - Ammonia increased [Unknown]
  - Thyroid disorder [Unknown]
  - Constipation [Unknown]
  - Product administration interrupted [Unknown]
